FAERS Safety Report 8435155-5 (Version None)
Quarter: 2012Q2

REPORT INFORMATION
  Report Type: 
  Country: None (occurrence: None)
  Receive Date: 20120614
  Receipt Date: 20120606
  Transmission Date: 20120825
  Serious: Yes (Hospitalization)
  Sender: FDA-Public Use
  Company Number: US-BAYER-2012-057470

PATIENT
  Age: 33 Year
  Sex: Female
  Weight: 88 kg

DRUGS (4)
  1. PERCOCET [Concomitant]
     Dosage: UNK
  2. MOBIC [Concomitant]
     Dosage: 7.5 MG, DAILY
     Route: 048
  3. YAZ [Suspect]
     Dosage: UNK
  4. YASMIN [Suspect]

REACTIONS (2)
  - DEEP VEIN THROMBOSIS [None]
  - PULMONARY EMBOLISM [None]
